FAERS Safety Report 9851851 (Version 1)
Quarter: 2014Q1

REPORT INFORMATION
  Report Type: Spontaneous
  Country: US (occurrence: US)
  Receive Date: 20140129
  Receipt Date: 20140129
  Transmission Date: 20141002
  Serious: No
  Sender: FDA-Public Use
  Company Number: US-009507513-1401USA011667

PATIENT
  Age: 66 Year
  Sex: Female

DRUGS (6)
  1. DULERA [Suspect]
     Indication: EMPHYSEMA
     Dosage: 2 INHALATIONS TWICE DAILY
     Route: 055
     Dates: start: 20131230
  2. ASPIRIN [Concomitant]
  3. PRILOSEC [Concomitant]
     Route: 048
  4. PEPCID [Concomitant]
     Route: 048
  5. CITALOPRAM [Concomitant]
  6. CLONAZEPAM [Concomitant]

REACTIONS (3)
  - Emphysema [Not Recovered/Not Resolved]
  - Product taste abnormal [Unknown]
  - Nervousness [Not Recovered/Not Resolved]
